FAERS Safety Report 19429161 (Version 4)
Quarter: 2022Q2

REPORT INFORMATION
  Report Type: Report from Study
  Country: CO (occurrence: CO)
  Receive Date: 20210617
  Receipt Date: 20220629
  Transmission Date: 20220721
  Serious: Yes (Other)
  Sender: FDA-Public Use
  Company Number: CO-TAKEDA-2018TUS020360

PATIENT
  Age: 50 Year
  Sex: Male
  Weight: 65 kg

DRUGS (4)
  1. VEDOLIZUMAB [Suspect]
     Active Substance: VEDOLIZUMAB
     Indication: Colitis ulcerative
     Dosage: 300 MILLIGRAM
     Route: 042
     Dates: start: 20180112
  2. HYDROCORTISONE [Concomitant]
     Active Substance: HYDROCORTISONE
     Dosage: UNK UNK, BID
  3. DESONIDE [Concomitant]
     Active Substance: DESONIDE
     Dosage: UNK
  4. METRONIDAZOLE [Concomitant]
     Active Substance: METRONIDAZOLE
     Dosage: UNK UNK, QD

REACTIONS (19)
  - COVID-19 [Recovering/Resolving]
  - Infusion site swelling [Unknown]
  - Dermatitis allergic [Not Recovered/Not Resolved]
  - Weight fluctuation [Unknown]
  - Decreased appetite [Not Recovered/Not Resolved]
  - Insomnia [Not Recovered/Not Resolved]
  - Tremor [Not Recovered/Not Resolved]
  - Depression [Not Recovered/Not Resolved]
  - Diarrhoea [Not Recovered/Not Resolved]
  - Skin hypopigmentation [Not Recovered/Not Resolved]
  - Dyspnoea [Not Recovered/Not Resolved]
  - Chest pain [Unknown]
  - Malaise [Not Recovered/Not Resolved]
  - Infusion site erythema [Unknown]
  - Chills [Recovered/Resolved]
  - Headache [Not Recovered/Not Resolved]
  - Rash pruritic [Not Recovered/Not Resolved]
  - Nausea [Recovered/Resolved]
  - Pain in extremity [Not Recovered/Not Resolved]

NARRATIVE: CASE EVENT DATE: 20181005
